FAERS Safety Report 16011017 (Version 2)
Quarter: 2019Q1

REPORT INFORMATION
  Report Type: Spontaneous
  Country: GB (occurrence: GB)
  Receive Date: 20190227
  Receipt Date: 20190314
  Transmission Date: 20190418
  Serious: Yes (Hospitalization, Other)
  Sender: FDA-Public Use
  Company Number: GB-ACCORD-108756

PATIENT
  Age: 22 Year
  Sex: Female

DRUGS (4)
  1. AZATHIOPRINE. [Suspect]
     Active Substance: AZATHIOPRINE
     Indication: IMMUNOSUPPRESSION
     Dosage: LOWER DOSE
  2. PREDNISOLONE. [Suspect]
     Active Substance: PREDNISOLONE
     Indication: IMMUNOSUPPRESSION
     Dosage: ALSO RECEIVED 40 MG
     Route: 065
  3. TACROLIMUS. [Suspect]
     Active Substance: TACROLIMUS
     Indication: IMMUNOSUPPRESSION
     Route: 065
  4. MESALAZINE [Suspect]
     Active Substance: MESALAMINE
     Indication: CHOLANGITIS SCLEROSING
     Dosage: ALSO RECEIVED 2.4 G BID.
     Route: 065

REACTIONS (8)
  - Cytomegalovirus viraemia [Recovering/Resolving]
  - Neutropenia [Recovering/Resolving]
  - Haematochezia [Recovering/Resolving]
  - Weight decreased [Recovering/Resolving]
  - Hepatic failure [Recovering/Resolving]
  - Iron deficiency anaemia [Unknown]
  - Treatment failure [Recovered/Resolved]
  - Diarrhoea haemorrhagic [Recovering/Resolving]
